FAERS Safety Report 26109582 (Version 1)
Quarter: 2025Q4

REPORT INFORMATION
  Report Type: Spontaneous
  Country: US (occurrence: None)
  Receive Date: 20251201
  Receipt Date: 20251201
  Transmission Date: 20260118
  Serious: Yes (Other)
  Sender: UCB
  Company Number: US-UCBSA-2025075443

PATIENT
  Age: 44 Year
  Weight: 61.7 kg

DRUGS (4)
  1. KEPPRA [Suspect]
     Active Substance: LEVETIRACETAM
     Indication: Epilepsy
     Dosage: 1000 MILLIGRAM, 2X/DAY (BID)
  2. KLONOPIN [Concomitant]
     Active Substance: CLONAZEPAM
     Indication: Seizure
     Dosage: 1 MILLIGRAM
  3. ROBAXIN [Concomitant]
     Active Substance: METHOCARBAMOL
     Indication: Product used for unknown indication
     Dosage: 750 MILLIGRAM, 3X/DAY (TID)
  4. NAPROXEN [Concomitant]
     Active Substance: NAPROXEN
     Indication: Product used for unknown indication
     Dosage: 500 MILLIGRAM, 2X/DAY (BID) (TAKE 500 MG BY MOUTH IN THE MORNING AND 500 MG LN THE EVENING)

REACTIONS (16)
  - Seizure [Unknown]
  - Dizziness [Unknown]
  - Hot flush [Unknown]
  - Amnesia [Unknown]
  - Confusional state [Unknown]
  - Fatigue [Unknown]
  - Somnolence [Unknown]
  - Pollakiuria [Unknown]
  - Balance disorder [Unknown]
  - Asthenia [Unknown]
  - Restlessness [Unknown]
  - Automatism [Unknown]
  - Anger [Unknown]
  - Vision blurred [Unknown]
  - Insomnia [Unknown]
  - Postictal state [Unknown]
